FAERS Safety Report 5892663-9 (Version None)
Quarter: 2008Q3

REPORT INFORMATION
  Report Type: 
  Country: None (occurrence: None)
  Receive Date: 20080923
  Receipt Date: 20080912
  Transmission Date: 20090109
  Serious: Yes (Other)
  Sender: FDA-Public Use
  Company Number: PHHY2008JP20249

PATIENT
  Age: 77 Year
  Sex: Female

DRUGS (1)
  1. ZOMETA [Suspect]
     Indication: MULTIPLE MYELOMA
     Route: 042

REACTIONS (6)
  - ABSCESS [None]
  - DENTURE WEARER [None]
  - FACE AND MOUTH X-RAY ABNORMAL [None]
  - FISTULA [None]
  - GINGIVAL PAIN [None]
  - OSTEOMYELITIS [None]
